FAERS Safety Report 7575191-4 (Version None)
Quarter: 2011Q2

REPORT INFORMATION
  Report Type: 
  Country: None (occurrence: None)
  Receive Date: 20110627
  Receipt Date: 20110614
  Transmission Date: 20111010
  Serious: Yes (Hospitalization, Other)
  Sender: FDA-Public Use
  Company Number: US-ELI_LILLY_AND_COMPANY-US201104000867

PATIENT
  Sex: Female

DRUGS (16)
  1. MAGNESIUM [Concomitant]
     Dosage: 400 MG, UNK
  2. FELODIPINE [Concomitant]
  3. FENTANYL [Concomitant]
     Dosage: 25 MG, 6/W
  4. VITAMIN B-12 [Concomitant]
  5. FORTEO [Suspect]
     Dosage: 20 UG, QD
     Route: 058
     Dates: start: 20100114
  6. VITAMIN D [Concomitant]
     Dosage: 1000 DF, UNK
  7. COREG [Concomitant]
     Dosage: 6.25 MG, BID
  8. ASPIRIN [Concomitant]
     Dosage: 325 MG, EACH MORNING
  9. LESCOL XL [Concomitant]
     Dosage: 80 MG, UNK
  10. OMEPRAZOLE [Concomitant]
  11. FERROUS SULFATE TAB [Concomitant]
     Dosage: UNK, 3/W
  12. CALCIUM CARBONATE [Concomitant]
     Dosage: 600 MG, BID
  13. NORCO [Concomitant]
  14. DIOVAN HCT [Concomitant]
     Dosage: UNK, EACH MORNING
  15. KLOR-CON M [Concomitant]
     Dosage: 10 MEQ, EACH MORNING
  16. LEVOTHYROXINE SODIUM [Concomitant]
     Dosage: 25 UG, UNK

REACTIONS (2)
  - DEVICE BREAKAGE [None]
  - FRACTURE NONUNION [None]
